FAERS Safety Report 20599025 (Version 2)
Quarter: 2022Q3

REPORT INFORMATION
  Report Type: Spontaneous
  Country: US (occurrence: US)
  Receive Date: 20220315
  Receipt Date: 20220719
  Transmission Date: 20221026
  Serious: Yes (Hospitalization)
  Sender: FDA-Public Use
  Company Number: US-BEH-2022143207

PATIENT
  Age: 74 Year
  Sex: Male

DRUGS (2)
  1. HIZENTRA [Suspect]
     Active Substance: HUMAN IMMUNOGLOBULIN G
     Indication: Immunodeficiency
     Dosage: 12 GRAM, QW
     Route: 058
     Dates: start: 202202
  2. HIZENTRA [Suspect]
     Active Substance: HUMAN IMMUNOGLOBULIN G
     Indication: Primary immunodeficiency syndrome
     Dosage: 12 GRAM, QW
     Route: 058
     Dates: start: 20220604

REACTIONS (5)
  - Osteomyelitis [Unknown]
  - Headache [Unknown]
  - Pain [Unknown]
  - No adverse event [Unknown]
  - Wrong technique in device usage process [Unknown]

NARRATIVE: CASE EVENT DATE: 20220101
